FAERS Safety Report 23763324 (Version 1)
Quarter: 2024Q2

REPORT INFORMATION
  Report Type: Spontaneous
  Country: CA (occurrence: CA)
  Receive Date: 20240419
  Receipt Date: 20240419
  Transmission Date: 20240716
  Serious: Yes (Other)
  Sender: FDA-Public Use
  Company Number: CA-BRISTOL-MYERS SQUIBB COMPANY-2024-058529

PATIENT
  Age: 56 Year
  Sex: Female

DRUGS (4)
  1. OPDIVO [Suspect]
     Active Substance: NIVOLUMAB
     Indication: Lung neoplasm malignant
     Route: 042
     Dates: start: 20230627, end: 20230808
  2. YERVOY [Suspect]
     Active Substance: IPILIMUMAB
     Indication: Lung neoplasm malignant
     Route: 042
     Dates: start: 20230627, end: 20230808
  3. VITAMIN D NOS [Concomitant]
     Active Substance: VITAMIN D NOS
     Indication: Product used for unknown indication
  4. VITAMIN C [Concomitant]
     Active Substance: ASCORBIC ACID
     Indication: Product used for unknown indication

REACTIONS (24)
  - Mood altered [Unknown]
  - Amnesia [Unknown]
  - Confusional state [Unknown]
  - Discomfort [Unknown]
  - Headache [Recovered/Resolved]
  - Decreased appetite [Unknown]
  - Nausea [Unknown]
  - Vomiting [Unknown]
  - Somnolence [Unknown]
  - Fatigue [Unknown]
  - Weight increased [Unknown]
  - Gait disturbance [Unknown]
  - Myalgia [Unknown]
  - Muscular weakness [Unknown]
  - Musculoskeletal stiffness [Unknown]
  - Micturition urgency [Unknown]
  - Chest pain [Unknown]
  - Abdominal pain upper [Recovered/Resolved]
  - Mouth ulceration [Unknown]
  - Dry skin [Unknown]
  - Rash macular [Unknown]
  - Urinary hesitation [Unknown]
  - Lung disorder [Unknown]
  - Off label use [Unknown]

NARRATIVE: CASE EVENT DATE: 20240405
